FAERS Safety Report 23550431 (Version 1)
Quarter: 2024Q1

REPORT INFORMATION
  Report Type: Spontaneous
  Country: US (occurrence: US)
  Receive Date: 20240221
  Receipt Date: 20240221
  Transmission Date: 20240409
  Serious: Yes (Other)
  Sender: FDA-Public Use
  Company Number: US-DSPHARMA-2024SUN000129

PATIENT

DRUGS (1)
  1. LATUDA [Suspect]
     Active Substance: LURASIDONE HYDROCHLORIDE
     Indication: Bipolar disorder
     Dosage: UNK, (TITRATING DOWN OFF THE LATUDA (WAS DOWN TO PROBABLY 1 MG)
     Route: 048

REACTIONS (12)
  - Near death experience [Unknown]
  - Tardive dyskinesia [Unknown]
  - Musculoskeletal chest pain [Unknown]
  - Arthralgia [Unknown]
  - Feeding disorder [Unknown]
  - Gait disturbance [Unknown]
  - Speech disorder [Unknown]
  - Decreased activity [Unknown]
  - Back pain [Unknown]
  - Insomnia [Unknown]
  - Dyspnoea [Unknown]
  - Underdose [Unknown]
